FAERS Safety Report 7921535-0 (Version None)
Quarter: 2011Q4

REPORT INFORMATION
  Report Type: 
  Country: None (occurrence: None)
  Receive Date: 20111117
  Receipt Date: 20111117
  Transmission Date: 20120403
  Serious: Yes (Death, Other)
  Sender: FDA-Public Use
  Company Number: US-ROXANE LABORATORIES, INC.-2011-RO-01492RO

PATIENT
  Sex: Female

DRUGS (11)
  1. SLOW MAG [Concomitant]
  2. SYNTHROID [Concomitant]
  3. ASPIRIN [Concomitant]
  4. MORPHINE [Concomitant]
  5. ELOTUZUMAB [Suspect]
     Indication: MULTIPLE MYELOMA
     Route: 042
     Dates: start: 20110927
  6. DEXAMETHASONE [Suspect]
     Indication: MULTIPLE MYELOMA
     Dosage: 20 MG
     Route: 048
     Dates: start: 20110927
  7. CALCIUM PLUS VITAMIN D [Concomitant]
  8. DEXAMETHASONE [Suspect]
     Dosage: 20 MG
     Route: 042
     Dates: start: 20110927
  9. LENALIDOMIDE [Suspect]
     Indication: MULTIPLE MYELOMA
     Dosage: 25 MG
     Route: 048
     Dates: start: 20111003
  10. CYMBALTA [Concomitant]
  11. MULTI-VITAMINS [Concomitant]

REACTIONS (5)
  - CELLULITIS [None]
  - SEPSIS [None]
  - MULTI-ORGAN FAILURE [None]
  - THROMBOCYTOPENIA [None]
  - PNEUMONIA [None]
